FAERS Safety Report 5271315-2 (Version None)
Quarter: 2007Q1

REPORT INFORMATION
  Report Type: 
  Country: None (occurrence: None)
  Receive Date: 20061214
  Receipt Date: 20060918
  Transmission Date: 20070707
  Serious: Yes (Other)
  Sender: FDA-Public Use
  Company Number: 2006112071

PATIENT

DRUGS (4)
  1. BEXTRA [Suspect]
     Dates: start: 20030927, end: 20031027
  2. CELEBREX [Suspect]
     Dates: start: 20011128, end: 20011228
  3. CELEBREX [Suspect]
     Dates: start: 20031125, end: 20040822
  4. VIOXX [Suspect]
     Dates: start: 20030113, end: 20030723

REACTIONS (1)
  - MYOCARDIAL INFARCTION [None]
